FAERS Safety Report 20494348 (Version 2)
Quarter: 2022Q1

REPORT INFORMATION
  Report Type: Spontaneous
  Country: BR (occurrence: BR)
  Receive Date: 20220221
  Receipt Date: 20220302
  Transmission Date: 20220424
  Serious: Yes (Other)
  Sender: FDA-Public Use
  Company Number: ALC2022BR000957

PATIENT
  Sex: Female

DRUGS (2)
  1. DEXTRAN 70\HYPROMELLOSES [Suspect]
     Active Substance: DEXTRAN 70\HYPROMELLOSES
     Indication: Glaucoma
     Dosage: UNK
     Route: 065
  2. BIMATOPROST\TIMOLOL [Concomitant]
     Active Substance: BIMATOPROST\TIMOLOL
     Indication: Glaucoma
     Dosage: UNK
     Route: 047

REACTIONS (2)
  - Dry eye [Unknown]
  - Product use in unapproved indication [Unknown]
